FAERS Safety Report 4678950-0 (Version None)
Quarter: 2005Q2

REPORT INFORMATION
  Report Type: 
  Country: None (occurrence: None)
  Receive Date: 20050525
  Receipt Date: 20050208
  Transmission Date: 20051028
  Serious: No
  Sender: FDA-Public Use
  Company Number: 210978

PATIENT
  Age: 46 Year
  Sex: Male

DRUGS (1)
  1. RAPTIVA [Suspect]
     Indication: PSORIASIS
     Dosage: 90 MG, UNK, SUBCUTANEOUS
     Route: 058
     Dates: start: 20040324

REACTIONS (1)
  - VISION BLURRED [None]
